FAERS Safety Report 5188426-2 (Version None)
Quarter: 2006Q4

REPORT INFORMATION
  Report Type: 
  Country: None (occurrence: None)
  Receive Date: 20061221
  Receipt Date: 20061002
  Transmission Date: 20070319
  Serious: No
  Sender: FDA-Public Use
  Company Number: US-AMGEN-US195620

PATIENT
  Sex: Female

DRUGS (1)
  1. ENBREL [Suspect]
     Indication: RHEUMATOID ARTHRITIS
     Route: 058
     Dates: start: 20060515, end: 20060601

REACTIONS (4)
  - COUGH [None]
  - LUNG INFECTION [None]
  - MASTITIS [None]
  - PRODUCTIVE COUGH [None]
